FAERS Safety Report 9867245 (Version 1)
Quarter: 2014Q1

REPORT INFORMATION
  Report Type: Spontaneous
  Country: US (occurrence: US)
  Receive Date: 20140204
  Receipt Date: 20140204
  Transmission Date: 20141002
  Serious: Yes (Disabling, Other)
  Sender: FDA-Public Use
  Company Number: US-TARO-2014P1000696

PATIENT
  Age: 60 Year
  Sex: Male
  Weight: 77.11 kg

DRUGS (7)
  1. CLOTRIMAZOLE [Suspect]
     Indication: CERUMEN IMPACTION
     Route: 061
     Dates: start: 201312, end: 201312
  2. HYDROCODONE [Concomitant]
  3. ACETAMINOPHEN [Concomitant]
  4. TEMAZEPAM [Concomitant]
  5. AMIODARONE [Concomitant]
  6. NORVASC [Concomitant]
  7. BABY ASPIRIN [Concomitant]

REACTIONS (6)
  - Ear discomfort [Recovered/Resolved]
  - Throat irritation [Recovered/Resolved]
  - Tearfulness [Recovered/Resolved]
  - Tympanic membrane perforation [Not Recovered/Not Resolved]
  - Deafness [Not Recovered/Not Resolved]
  - Off label use [Recovered/Resolved]
